FAERS Safety Report 15899149 (Version 1)
Quarter: 2019Q1

REPORT INFORMATION
  Report Type: Spontaneous
  Country: IT (occurrence: IT)
  Receive Date: 20190201
  Receipt Date: 20190201
  Transmission Date: 20190417
  Serious: Yes (Hospitalization, Other)
  Sender: FDA-Public Use
  Company Number: IT-AUROBINDO-AUR-APL-2019-003545

PATIENT

DRUGS (2)
  1. TRITTICO [Concomitant]
     Active Substance: TRAZODONE HYDROCHLORIDE
     Indication: DEPRESSION
     Dosage: 75 MILLIGRAM
     Route: 048
     Dates: start: 20170831
  2. OLMESARTAN FILM COATED TABLETS [Suspect]
     Active Substance: OLMESARTAN
     Indication: HYPERTENSION
     Dosage: UNK
     Route: 048
     Dates: start: 20170831

REACTIONS (1)
  - Chronic kidney disease [Recovering/Resolving]

NARRATIVE: CASE EVENT DATE: 20190104
